FAERS Safety Report 7720705-4 (Version None)
Quarter: 2011Q3

REPORT INFORMATION
  Report Type: 
  Country: None (occurrence: None)
  Receive Date: 20110831
  Receipt Date: 20110825
  Transmission Date: 20111222
  Serious: Yes (Death, Other)
  Sender: FDA-Public Use
  Company Number: PHHY2011BR47165

PATIENT
  Sex: Male

DRUGS (5)
  1. DIOVAN [Suspect]
     Indication: HYPERTENSION
     Dosage: UNK UKN, UNK
     Dates: start: 20110401
  2. METFORMIN [Concomitant]
     Indication: DIABETES MELLITUS
  3. TENORMIN [Concomitant]
     Indication: HYPERTENSION
  4. HOMEOPATHIC PREPARATION [Concomitant]
     Indication: CHOLELITHIASIS
  5. GLYBURIDE [Concomitant]
     Indication: DIABETES MELLITUS

REACTIONS (3)
  - INFARCTION [None]
  - BLOOD PRESSURE FLUCTUATION [None]
  - DEATH [None]
